FAERS Safety Report 8061240-6 (Version None)
Quarter: 2012Q1

REPORT INFORMATION
  Report Type: 
  Country: None (occurrence: None)
  Receive Date: 20120120
  Receipt Date: 20110720
  Transmission Date: 20120608
  Serious: No
  Sender: FDA-Public Use
  Company Number: US-ALLERGAN-1109817US

PATIENT
  Age: 75 Year
  Sex: Female

DRUGS (3)
  1. RESTASIS [Suspect]
     Indication: DRY EYE
     Dosage: 1 GTT, BID
     Route: 047
     Dates: start: 20110712, end: 20110717
  2. GENTEAL                            /00445101/ [Concomitant]
     Indication: DRY EYE
  3. ARTIFICIAL TEARS UNSPECIFIED [Suspect]
     Indication: DRY EYE
     Route: 047

REACTIONS (5)
  - EYELID IRRITATION [None]
  - EYELID OEDEMA [None]
  - OCULAR HYPERAEMIA [None]
  - EYE IRRITATION [None]
  - FOREIGN BODY SENSATION IN EYES [None]
